FAERS Safety Report 22729085 (Version 2)
Quarter: 2024Q1

REPORT INFORMATION
  Report Type: Report from Study
  Country: US (occurrence: US)
  Receive Date: 20230720
  Receipt Date: 20240301
  Transmission Date: 20240410
  Serious: No
  Sender: FDA-Public Use
  Company Number: US-009507513-2306USA013332

PATIENT
  Sex: Female

DRUGS (2)
  1. PREVYMIS [Suspect]
     Active Substance: LETERMOVIR
     Indication: Cytomegalovirus infection
     Dosage: 480 MG ONCE DAILY (QD)
     Route: 048
     Dates: start: 202302, end: 2023
  2. AMLODIPINE [Concomitant]
     Active Substance: AMLODIPINE BESYLATE
     Indication: Hypertension
     Dosage: UNK

REACTIONS (5)
  - Blood pressure decreased [Unknown]
  - Blood pressure increased [Unknown]
  - Palpitations [Unknown]
  - Heart rate increased [Unknown]
  - Product use in unapproved indication [Unknown]

NARRATIVE: CASE EVENT DATE: 20230101
